FAERS Safety Report 17889626 (Version 1)
Quarter: 2020Q2

REPORT INFORMATION
  Report Type: Spontaneous
  Country: US (occurrence: US)
  Receive Date: 20200611
  Receipt Date: 20200611
  Transmission Date: 20200714
  Serious: Yes (Death)
  Sender: FDA-Public Use
  Company Number: None

PATIENT
  Age: 73 Year
  Sex: Male

DRUGS (1)
  1. TALTZ [Suspect]
     Active Substance: IXEKIZUMAB
     Indication: PSORIASIS
     Dosage: 1 PEN 80MG Q4WEEKS SUBQ
     Route: 058
     Dates: start: 20191031

REACTIONS (1)
  - Death [None]

NARRATIVE: CASE EVENT DATE: 20200518
